FAERS Safety Report 12042444 (Version 2)
Quarter: 2016Q1

REPORT INFORMATION
  Report Type: Report from Study
  Country: FR (occurrence: FR)
  Receive Date: 20160208
  Receipt Date: 20160303
  Transmission Date: 20160526
  Serious: Yes (Other)
  Sender: FDA-Public Use
  Company Number: FR-ACTELION-A-CH2016-130766

PATIENT
  Age: 22 Year
  Sex: Female
  Weight: 43.5 kg

DRUGS (5)
  1. ZAVESCA [Suspect]
     Active Substance: MIGLUSTAT
     Indication: NIEMANN-PICK DISEASE
     Dosage: 200 MG, TID
     Route: 048
  2. ZAVESCA [Suspect]
     Active Substance: MIGLUSTAT
     Dosage: 200 MG, TID
     Route: 048
     Dates: start: 20090211
  3. ZAVESCA [Suspect]
     Active Substance: MIGLUSTAT
     Dosage: UNK
     Route: 048
     Dates: start: 20090211
  4. LEVOTAMIN [Concomitant]
     Dosage: UNK, OD
     Route: 048
  5. ULTRABIOTIC IBS [Concomitant]
     Dosage: 2 UNK, OD
     Route: 048

REACTIONS (3)
  - Hypertonia [Recovered/Resolved]
  - Seizure [Recovered/Resolved]
  - Loss of consciousness [Recovered/Resolved]

NARRATIVE: CASE EVENT DATE: 20151210
